FAERS Safety Report 4402139-3 (Version None)
Quarter: 2004Q3

REPORT INFORMATION
  Report Type: 
  Country: None (occurrence: None)
  Receive Date: 20040716
  Receipt Date: 20010629
  Transmission Date: 20050211
  Serious: No
  Sender: FDA-Public Use
  Company Number: 02100-JPN-01-0045

PATIENT
  Age: 79 Year
  Sex: Female

DRUGS (2)
  1. CILOSTAZOL [Suspect]
     Indication: CARDIOVASCULAR DISORDER
     Dosage: SEE IMAGE
     Route: 048
     Dates: start: 20010215, end: 20010215
  2. CILOSTAZOL [Suspect]
     Indication: CARDIOVASCULAR DISORDER
     Dosage: SEE IMAGE
     Route: 048
     Dates: start: 20010214, end: 20040214

REACTIONS (6)
  - ANGINA PECTORIS [None]
  - CONDITION AGGRAVATED [None]
  - DRUG INEFFECTIVE [None]
  - FEELING COLD [None]
  - HEART RATE INCREASED [None]
  - HYPOAESTHESIA [None]
